FAERS Safety Report 20954769 (Version 2)
Quarter: 2022Q3

REPORT INFORMATION
  Report Type: Report from Study
  Country: US (occurrence: US)
  Receive Date: 20220614
  Receipt Date: 20220705
  Transmission Date: 20221026
  Serious: Yes (Death, Hospitalization)
  Sender: FDA-Public Use
  Company Number: US-AMGEN-USACT2022101271

PATIENT
  Age: 62 Year
  Sex: Male
  Weight: 109.2 kg

DRUGS (6)
  1. BLINATUMOMAB [Suspect]
     Active Substance: BLINATUMOMAB
     Indication: B precursor type acute leukaemia
     Dosage: UNK
     Route: 042
  2. MERCAPTOPURINE [Suspect]
     Active Substance: MERCAPTOPURINE
     Indication: B precursor type acute leukaemia
     Dosage: 75 MILLIGRAM/SQ. METER, QD (TOTAL DOSE: 11850 MG)
     Route: 048
  3. METHOTREXATE [Suspect]
     Active Substance: METHOTREXATE
     Indication: B precursor type acute leukaemia
     Dosage: 20 MILLIGRAM/SQ. METER, QWK (TOTAL DOSE; 247.5 MG)
     Route: 065
  4. PREDNISONE [Suspect]
     Active Substance: PREDNISONE
     Indication: B precursor type acute leukaemia
     Dosage: 60 MILLIGRAM/SQ. METER, ON DAYS 1-5 EVERY 3 MONTHS (TOTAL DOSE: 2250 MG)
     Route: 048
  5. VINCRISTINE SULFATE [Suspect]
     Active Substance: VINCRISTINE SULFATE
     Indication: B precursor type acute leukaemia
     Dosage: 1.4 MILLIGRAM/SQ. METER, ON DAY I EVERY 3 MONTHS (MAXIMTUN 2 MG/DOSE) (TOTAL DOSE:2 MG )
     Route: 042
  6. COVID-19 VACCINE NOS [Suspect]
     Active Substance: COVID-19 VACCINE NOS
     Indication: COVID-19 prophylaxis
     Dosage: UNK
     Route: 065

REACTIONS (1)
  - COVID-19 [Fatal]

NARRATIVE: CASE EVENT DATE: 20211224
